FAERS Safety Report 15153500 (Version 3)
Quarter: 2018Q4

REPORT INFORMATION
  Report Type: Spontaneous
  Country: JP (occurrence: JP)
  Receive Date: 20180717
  Receipt Date: 20181204
  Transmission Date: 20190204
  Serious: Yes (Hospitalization)
  Sender: FDA-Public Use
  Company Number: JP-TEVA-2018-JP-924339

PATIENT

DRUGS (1)
  1. MODAFINIL TABLETS 100 MG [Suspect]
     Active Substance: MODAFINIL
     Route: 048

REACTIONS (1)
  - Bedridden [Unknown]
